FAERS Safety Report 8872985 (Version 1)
Quarter: 2012Q4

REPORT INFORMATION
  Report Type: Report from Study
  Country: BE (occurrence: BE)
  Receive Date: 20121030
  Receipt Date: 20121030
  Transmission Date: 20130627
  Serious: Yes (Life-Threatening, Hospitalization)
  Sender: FDA-Public Use
  Company Number: BE-ELI_LILLY_AND_COMPANY-BE201210008029

PATIENT
  Age: 79 Year
  Sex: Male
  Weight: 73.7 kg

DRUGS (30)
  1. GEMCITABINE HYDROCHLORIDE [Suspect]
     Indication: NON-SMALL CELL LUNG CANCER
     Dosage: 1250 mg/m2, 1 dose every 21 days
     Route: 042
     Dates: start: 20080828, end: 20081119
  2. GEMCITABINE HYDROCHLORIDE [Suspect]
     Dosage: 937.5 mg/m2, Day 1 and 8 every 3 weeks
     Route: 042
     Dates: start: 20081217
  3. GEMCITABINE HYDROCHLORIDE [Suspect]
     Dosage: 1250 mg/m2,  Day 1 and 8 every 3 weeks
  4. CISPLATIN [Suspect]
     Indication: NON-SMALL CELL LUNG CANCER
     Dosage: 75 mg/m2, 1 dose every 3 weeks
     Route: 042
     Dates: start: 20080828, end: 20081113
  5. CISPLATIN [Suspect]
     Dosage: 56.25 mg/m2, 1 dose every 3 weeks
     Dates: start: 20081217
  6. CISPLATIN [Suspect]
     Dosage: 75 mg/m2, 1 dose every 3 weeks
     Route: 042
  7. BEVACIZUMAB [Suspect]
     Indication: NON-SMALL CELL LUNG CANCER
     Dosage: 15 mg/m2, 1 dose every 3 weeks
     Route: 042
     Dates: start: 20080828, end: 20081113
  8. BEVACIZUMAB [Suspect]
     Dosage: 15 mg/m2,  1 dose every 3 weeks
     Route: 042
     Dates: start: 20081217, end: 20090129
  9. SIMVASTATIN [Concomitant]
     Dosage: 40 mg, qd
     Dates: start: 1998
  10. SELECTOL [Concomitant]
     Dosage: 200 mg, qd
     Dates: start: 1987, end: 20090110
  11. ASAFLOW [Concomitant]
     Dosage: 160 mg, qd
     Dates: start: 1987, end: 20081108
  12. ASAFLOW [Concomitant]
     Dosage: 80 mg, qd
     Dates: start: 20081203, end: 20090109
  13. REDOMEX [Concomitant]
     Dosage: 50 mg, qd
     Dates: start: 20080626
  14. DAFALGAN [Concomitant]
     Dosage: 1 g, prn
     Dates: start: 20081112
  15. EMCONCOR [Concomitant]
     Dosage: 2.5 mg, qd
     Dates: start: 20080814, end: 20090110
  16. STILNOCT [Concomitant]
     Dosage: 10 mg, qd
     Dates: start: 20080826
  17. OMEPRAZOLE [Concomitant]
     Dosage: 40 mg, qd
     Dates: start: 20081128
  18. DUOVENT [Concomitant]
     Dosage: UNK
     Dates: start: 20090110
  19. MOVICOL [Concomitant]
     Dosage: 1 DF, prn
     Dates: start: 20080828, end: 20090110
  20. CONTRAMAL [Concomitant]
     Dosage: 100 mg, qd
     Dates: start: 20081127, end: 20090120
  21. MACROGOL [Concomitant]
     Dosage: unk
  22. ELECTROLYTE [Concomitant]
     Dosage: UNK
  23. ONDANSETRON [Concomitant]
     Dosage: UNK
  24. METHYLPREDNISOLONE [Concomitant]
     Dosage: UNK
  25. LORAZEPAM [Concomitant]
     Dosage: UNK
  26. MANNITOL [Concomitant]
     Dosage: UNK
  27. SODIUM CHLORIDE [Concomitant]
     Dosage: UNK
  28. POTASSIUM CHLORIDE [Concomitant]
     Dosage: UNK
  29. MAGNESIUM SULFATE [Concomitant]
     Dosage: UNK
  30. GLUCOSE W/SODIUM CHLORIDE [Concomitant]
     Dosage: UNK

REACTIONS (2)
  - Pulmonary oedema [Recovered/Resolved]
  - Lung infection [Recovered/Resolved]
